FAERS Safety Report 10227712 (Version 1)
Quarter: 2014Q2

REPORT INFORMATION
  Report Type: Report from Study
  Country: US (occurrence: US)
  Receive Date: 20140610
  Receipt Date: 20140610
  Transmission Date: 20141212
  Serious: Yes (Other)
  Sender: FDA-Public Use
  Company Number: US-ABBVIE-14P-163-1244118-00

PATIENT
  Age: 67 Year
  Sex: Female

DRUGS (3)
  1. HUMIRA [Suspect]
     Indication: RHEUMATOID ARTHRITIS
     Dates: start: 201311
  2. SULFASALAZINE [Concomitant]
     Indication: ARTHRITIS
     Dosage: 3 TABLETS
  3. TYLENOL [Concomitant]
     Indication: PAIN
     Dosage: AS NEEDED

REACTIONS (9)
  - Thyroid neoplasm [Not Recovered/Not Resolved]
  - Arthralgia [Unknown]
  - Joint swelling [Unknown]
  - Pain [Unknown]
  - Flushing [Unknown]
  - Vitamin D decreased [Unknown]
  - Blood calcium increased [Unknown]
  - Pain [Unknown]
  - Rheumatoid arthritis [Unknown]
